FAERS Safety Report 9731170 (Version 2)
Quarter: 2014Q1

REPORT INFORMATION
  Report Type: Spontaneous
  Country: JP (occurrence: JP)
  Receive Date: 20131203
  Receipt Date: 20140321
  Transmission Date: 20141002
  Serious: Yes (Other)
  Sender: FDA-Public Use
  Company Number: JP-UCBSA-104419

PATIENT
  Sex: 0

DRUGS (2)
  1. E KEPPRA [Suspect]
     Indication: EPILEPSY
     Dosage: 500 MG
     Route: 048
  2. TEMODAL [Suspect]
     Dosage: UNKNOWN DOSE

REACTIONS (1)
  - Platelet count decreased [Recovered/Resolved]
